FAERS Safety Report 9778788 (Version 1)
Quarter: 2013Q4

REPORT INFORMATION
  Report Type: Spontaneous
  Country: US (occurrence: None)
  Receive Date: 20131220
  Receipt Date: 20131220
  Transmission Date: 20140711
  Serious: Yes (Other)
  Sender: FDA-Public Use
  Company Number: None

PATIENT
  Age: 16 Year
  Sex: Female
  Weight: 50.8 kg

DRUGS (1)
  1. METHYLPHENIDATE 36 MG MALLINCKRO [Suspect]
     Indication: ATTENTION DEFICIT/HYPERACTIVITY DISORDER
     Dosage: 1 TAB QD ORAL
     Dates: start: 20131208, end: 20131212

REACTIONS (3)
  - Insomnia [None]
  - Tremor [None]
  - Feeling jittery [None]
